FAERS Safety Report 18024814 (Version 1)
Quarter: 2020Q3

REPORT INFORMATION
  Report Type: Spontaneous
  Country: US (occurrence: US)
  Receive Date: 20200714
  Receipt Date: 20200714
  Transmission Date: 20201103
  Serious: No
  Sender: FDA-Public Use
  Company Number: None

PATIENT
  Age: 86 Year
  Sex: Male
  Weight: 85 kg

DRUGS (1)
  1. HEPARIN/SODIUM CHLORIDE (HEPARIN NA 100UNT/ML/NACL 0.45% INJ) [Suspect]
     Active Substance: HEPARIN SODIUM
     Indication: ATRIAL FIBRILLATION
     Dosage: ?          OTHER STRENGTH:100UNT/ML, 0.45%;?
     Dates: end: 20200130

REACTIONS (1)
  - Thrombocytopenia [None]

NARRATIVE: CASE EVENT DATE: 20200130
